FAERS Safety Report 22126995 (Version 2)
Quarter: 2023Q1

REPORT INFORMATION
  Report Type: Spontaneous
  Country: US (occurrence: US)
  Receive Date: 20230322
  Receipt Date: 20230329
  Transmission Date: 20230417
  Serious: No
  Sender: FDA-Public Use
  Company Number: US-TEVA-2023-US-2866709

PATIENT

DRUGS (1)
  1. ESTRADIOL [Suspect]
     Active Substance: ESTRADIOL
     Indication: Product used for unknown indication
     Route: 065
     Dates: start: 202302, end: 20230227

REACTIONS (10)
  - Drug ineffective [Unknown]
  - Insomnia [Unknown]
  - Hot flush [Unknown]
  - Illness [Unknown]
  - Headache [Unknown]
  - Crying [Unknown]
  - Anxiety [Unknown]
  - Mood swings [Unknown]
  - Psychiatric symptom [Unknown]
  - Quality of life decreased [Unknown]
